FAERS Safety Report 8591712-7 (Version None)
Quarter: 2012Q3

REPORT INFORMATION
  Report Type: 
  Country: None (occurrence: None)
  Receive Date: 20120814
  Receipt Date: 20120807
  Transmission Date: 20120928
  Serious: Yes (Hospitalization)
  Sender: FDA-Public Use
  Company Number: 2012SP002201

PATIENT
  Age: 43 Year
  Sex: Female

DRUGS (16)
  1. TEGRETOL [Concomitant]
     Indication: TRIGEMINAL NEURALGIA
  2. VERAPAMIL [Concomitant]
     Indication: ATRIAL FIBRILLATION
  3. FENTANYL [Concomitant]
     Indication: PAIN
     Route: 062
  4. OXYCODONE [Concomitant]
     Indication: PAIN
  5. LATUDA [Suspect]
     Route: 048
     Dates: start: 20120701
  6. LATUDA [Suspect]
     Indication: DEPRESSION
     Route: 048
     Dates: start: 20120701, end: 20120701
  7. DIGOXIN [Concomitant]
     Indication: ATRIAL FIBRILLATION
  8. LYRICA [Concomitant]
     Indication: FIBROMYALGIA
  9. TIZANIDINE HYDROCHLORIDE [Concomitant]
     Indication: MUSCLE RELAXANT THERAPY
  10. CELEXA [Concomitant]
     Indication: PRODUCT USED FOR UNKNOWN INDICATION
  11. LEVOTHYROXINE SODIUM [Concomitant]
     Indication: THYROID DISORDER
  12. KLONOPIN [Concomitant]
     Indication: PANIC ATTACK
  13. METFORMIN HYDROCHLORIDE [Concomitant]
     Indication: DIABETES MELLITUS
  14. VITAMINS NOS [Concomitant]
     Indication: PRODUCT USED FOR UNKNOWN INDICATION
  15. GLIPIZIDE [Concomitant]
     Indication: DIABETES MELLITUS
  16. NOVOLOG [Concomitant]
     Indication: DIABETES MELLITUS

REACTIONS (2)
  - HYPERSOMNIA [None]
  - ATRIAL FIBRILLATION [None]
